FAERS Safety Report 19287089 (Version 2)
Quarter: 2022Q2

REPORT INFORMATION
  Report Type: Spontaneous
  Country: PL (occurrence: PL)
  Receive Date: 20210521
  Receipt Date: 20220617
  Transmission Date: 20220721
  Serious: Yes (Other)
  Sender: FDA-Public Use
  Company Number: PL-NOVARTISPH-NVSC2021PL109555

PATIENT
  Sex: Female

DRUGS (13)
  1. ELTROMBOPAG OLAMINE [Suspect]
     Active Substance: ELTROMBOPAG OLAMINE
     Indication: Immune thrombocytopenia
     Dosage: UNK
     Route: 065
     Dates: start: 20180515, end: 20200724
  2. PRIVIGEN [Concomitant]
     Active Substance: HUMAN IMMUNOGLOBULIN G
     Indication: Product used for unknown indication
     Dosage: UNK
     Route: 065
     Dates: start: 20190802, end: 20190805
  3. OCTAGAM IMMUNE GLOBULIN (HUMAN) [Concomitant]
     Active Substance: HUMAN IMMUNOGLOBULIN G
     Indication: Product used for unknown indication
     Dosage: UNK
     Route: 065
     Dates: start: 20191023, end: 20191026
  4. OCTAGAM IMMUNE GLOBULIN (HUMAN) [Concomitant]
     Active Substance: HUMAN IMMUNOGLOBULIN G
     Dosage: UNK
     Route: 065
     Dates: start: 20200727, end: 20200728
  5. PREDNISONE [Concomitant]
     Active Substance: PREDNISONE
     Indication: Product used for unknown indication
     Dosage: 10 MG
     Route: 065
     Dates: start: 20191025
  6. PREDNISONE [Concomitant]
     Active Substance: PREDNISONE
     Dosage: 5 MG
     Route: 065
     Dates: start: 20191027
  7. PREDNISONE [Concomitant]
     Active Substance: PREDNISONE
     Dosage: UNK (3 X 10 MG)
     Route: 065
     Dates: start: 20191129, end: 20200728
  8. DEXAMETHASONE [Concomitant]
     Active Substance: DEXAMETHASONE
     Indication: Product used for unknown indication
     Dosage: UNK (11TH PULSE)
     Route: 065
     Dates: start: 20200807, end: 20200810
  9. DEXAMETHASONE [Concomitant]
     Active Substance: DEXAMETHASONE
     Dosage: UNK (12TH PULSE)
     Route: 065
     Dates: start: 20200910, end: 20200913
  10. DEXAMETHASONE [Concomitant]
     Active Substance: DEXAMETHASONE
     Dosage: UNK (13TH PULSE)
     Route: 065
     Dates: start: 202011
  11. PREDNISONE [Concomitant]
     Active Substance: PREDNISONE
     Indication: Product used for unknown indication
     Dosage: 10 MG
     Route: 065
     Dates: start: 20191025
  12. PREDNISONE [Concomitant]
     Active Substance: PREDNISONE
     Dosage: 5 MG
     Route: 065
     Dates: start: 20191027
  13. PREDNISONE [Concomitant]
     Active Substance: PREDNISONE
     Dosage: UNK (3 X 10 MG )
     Route: 065
     Dates: start: 20191129, end: 20200728

REACTIONS (6)
  - Pneumonia [Unknown]
  - Appetite disorder [Unknown]
  - Infection [Unknown]
  - Respiratory syncytial virus test [Unknown]
  - Liver function test increased [Unknown]
  - Nausea [Unknown]
